FAERS Safety Report 20984725 (Version 1)
Quarter: 2022Q2

REPORT INFORMATION
  Report Type: Spontaneous
  Country: US (occurrence: None)
  Receive Date: 20220621
  Receipt Date: 20220621
  Transmission Date: 20220721
  Serious: No
  Sender: FDA-Public Use
  Company Number: US-ROCHE-2828958

PATIENT
  Age: 45 Year
  Sex: Male

DRUGS (2)
  1. XELODA [Suspect]
     Active Substance: CAPECITABINE
     Indication: Product used for unknown indication
     Dosage: ONGOING:YES
     Route: 048
     Dates: start: 202003
  2. XELODA [Suspect]
     Active Substance: CAPECITABINE
     Dosage: 2 TABS OF 500MG + 2 TABS OF THE, 500MG AND 150MG TABLET
     Route: 048

REACTIONS (2)
  - Drug intolerance [Unknown]
  - Palmar-plantar erythrodysaesthesia syndrome [Unknown]

NARRATIVE: CASE EVENT DATE: 20210510
